FAERS Safety Report 9176451 (Version 1)
Quarter: 2013Q1

REPORT INFORMATION
  Report Type: Spontaneous
  Country: US (occurrence: None)
  Receive Date: 20130320
  Receipt Date: 20130320
  Transmission Date: 20140127
  Serious: Yes (Other)
  Sender: FDA-Public Use
  Company Number: None

PATIENT
  Age: 61 Year
  Sex: Female

DRUGS (1)
  1. ENBREL 50MG AMGEN [Suspect]
     Indication: PSORIASIS
     Dosage: 50MG B/W SQ
     Route: 058
     Dates: start: 20121211, end: 20130301

REACTIONS (4)
  - Injection site bruising [None]
  - Injection site erythema [None]
  - Injection site swelling [None]
  - Injection site pruritus [None]
